FAERS Safety Report 6203622-0 (Version None)
Quarter: 2009Q2

REPORT INFORMATION
  Report Type: 
  Country: None (occurrence: None)
  Receive Date: 20090521
  Receipt Date: 20090511
  Transmission Date: 20091009
  Serious: Yes (Other)
  Sender: FDA-Public Use
  Company Number: ADE# 09-212DPR

PATIENT
  Age: 72 Year
  Sex: Female

DRUGS (2)
  1. DIGOXIN [Suspect]
     Indication: CARDIAC FIBRILLATION
     Dosage: ONE TABLET DAILY
  2. NITROGLYCERIN TABLETS [Concomitant]

REACTIONS (13)
  - BLADDER DISORDER [None]
  - CARDIAC DISORDER [None]
  - DEPRESSION [None]
  - DIZZINESS [None]
  - DYSARTHRIA [None]
  - DYSPNOEA [None]
  - DYSURIA [None]
  - HAEMORRHAGE SUBCUTANEOUS [None]
  - MYOCARDIAL INFARCTION [None]
  - NAUSEA [None]
  - PRODUCT SUBSTITUTION ISSUE [None]
  - RENAL DISORDER [None]
  - SUICIDAL BEHAVIOUR [None]
